FAERS Safety Report 16541158 (Version 1)
Quarter: 2019Q3

REPORT INFORMATION
  Report Type: Spontaneous
  Country: IN (occurrence: IN)
  Receive Date: 20190708
  Receipt Date: 20190708
  Transmission Date: 20191004
  Serious: Yes (Hospitalization)
  Sender: FDA-Public Use
  Company Number: IN-PFIZER INC-2019287027

PATIENT
  Age: 8 Year
  Sex: Male

DRUGS (1)
  1. PHENYTOIN. [Suspect]
     Active Substance: PHENYTOIN
     Indication: SEIZURE
     Dosage: 6 MG/KG, DAILY
     Route: 048

REACTIONS (4)
  - Drug level above therapeutic [Recovering/Resolving]
  - Hemiparesis [Recovering/Resolving]
  - Toxicity to various agents [Recovering/Resolving]
  - Altered state of consciousness [Recovering/Resolving]
